FAERS Safety Report 9536492 (Version 2)
Quarter: 2013Q3

REPORT INFORMATION
  Report Type: Spontaneous
  Country: RU (occurrence: RU)
  Receive Date: 20130919
  Receipt Date: 20130919
  Transmission Date: 20140515
  Serious: Yes (Other)
  Sender: FDA-Public Use
  Company Number: RU-JNJFOC-20121100632

PATIENT
  Age: 35 Year
  Sex: Female
  Weight: 52 kg

DRUGS (5)
  1. DARUNAVIR [Suspect]
     Indication: HIV INFECTION
     Route: 048
     Dates: start: 20101228
  2. RITONAVIR [Suspect]
     Indication: HIV INFECTION
     Route: 048
     Dates: start: 20101228
  3. ABACAVIR + LAMIVUDINE [Suspect]
     Indication: HIV INFECTION
     Dosage: 300/600 MG
     Route: 048
     Dates: start: 20101228
  4. FOLIC ACID [Concomitant]
     Route: 048
  5. MAGNESIUM VITAMIN B6 [Concomitant]
     Route: 048

REACTIONS (2)
  - Premature labour [Recovered/Resolved]
  - Exposure during pregnancy [Recovered/Resolved]
